FAERS Safety Report 7343111-3 (Version None)
Quarter: 2011Q1

REPORT INFORMATION
  Report Type: 
  Country: None (occurrence: None)
  Receive Date: 20110310
  Receipt Date: 20110302
  Transmission Date: 20110831
  Serious: Yes (Hospitalization)
  Sender: FDA-Public Use
  Company Number: US-BAXTER-2011BH001254

PATIENT
  Sex: Male

DRUGS (3)
  1. DIANEAL [Suspect]
     Indication: PERITONEAL DIALYSIS
     Route: 033
     Dates: start: 20110101
  2. DIANEAL [Suspect]
     Route: 033
     Dates: end: 20110101
  3. DIANEAL [Suspect]
     Route: 033
     Dates: start: 20110101, end: 20110101

REACTIONS (3)
  - ABDOMINAL DISTENSION [None]
  - DISCOMFORT [None]
  - GASTROINTESTINAL HAEMORRHAGE [None]
